FAERS Safety Report 7994374-2 (Version None)
Quarter: 2011Q4

REPORT INFORMATION
  Report Type: 
  Country: None (occurrence: None)
  Receive Date: 20111220
  Receipt Date: 20111209
  Transmission Date: 20120403
  Serious: Yes (Hospitalization)
  Sender: FDA-Public Use
  Company Number: US-MYLANLABS-2011S1025314

PATIENT
  Age: 75 Year
  Sex: Female
  Weight: 63.5 kg

DRUGS (4)
  1. METOPROLOL TARTRATE [Concomitant]
     Indication: HYPERTENSION
  2. ANTIGLAUCOMA PREPARATIONS AND MIOTICS [Concomitant]
     Indication: GLAUCOMA
  3. LEVOXYL [Concomitant]
     Indication: HYPOTHYROIDISM
  4. SOTRADECOL [Suspect]
     Indication: VARICOSE VEIN
     Route: 042
     Dates: start: 20111018, end: 20111018

REACTIONS (6)
  - INJECTION SITE VESICLES [None]
  - INJECTION SITE PAIN [None]
  - INJECTION SITE SWELLING [None]
  - INJECTION SITE HAEMATOMA [None]
  - SKIN NECROSIS [None]
  - VOMITING [None]
